FAERS Safety Report 7265607-5 (Version None)
Quarter: 2011Q1

REPORT INFORMATION
  Report Type: 
  Country: None (occurrence: None)
  Receive Date: 20110131
  Receipt Date: 20110123
  Transmission Date: 20110831
  Serious: Yes (Other)
  Sender: FDA-Public Use
  Company Number: HR-BAYER-2011-007507

PATIENT
  Sex: Female

DRUGS (1)
  1. YASMIN 0,03 MG/3 MG FILM COATED TABLETS [Suspect]
     Indication: PRODUCT USED FOR UNKNOWN INDICATION
     Dosage: UNK
     Dates: start: 20091001

REACTIONS (6)
  - FATIGUE [None]
  - DIZZINESS [None]
  - ANXIETY [None]
  - DYSPNOEA [None]
  - HEADACHE [None]
  - NAUSEA [None]
